FAERS Safety Report 4683308-4 (Version None)
Quarter: 2005Q2

REPORT INFORMATION
  Report Type: 
  Country: None (occurrence: None)
  Receive Date: 20050602
  Receipt Date: 20050221
  Transmission Date: 20051028
  Serious: No
  Sender: FDA-Public Use
  Company Number: 200510296BWH

PATIENT
  Age: 50 Year
  Sex: Male
  Weight: 108.8633 kg

DRUGS (2)
  1. LEVITRA [Suspect]
     Indication: ERECTILE DYSFUNCTION
     Dosage: 3.33 MG, PRN, ORAL
     Route: 048
     Dates: start: 20040701
  2. LIPITOR [Concomitant]

REACTIONS (3)
  - HEADACHE [None]
  - SINUS HEADACHE [None]
  - TOOTHACHE [None]
